FAERS Safety Report 17729540 (Version 1)
Quarter: 2020Q2

REPORT INFORMATION
  Report Type: Spontaneous
  Country: US (occurrence: US)
  Receive Date: 20200430
  Receipt Date: 20200430
  Transmission Date: 20200714
  Serious: No
  Sender: FDA-Public Use
  Company Number: US-TEVA-2020-US-1228263

PATIENT
  Sex: Male

DRUGS (1)
  1. QVAR REDIHALER [Suspect]
     Active Substance: BECLOMETHASONE DIPROPIONATE
     Dosage: 80 MCG
     Route: 048

REACTIONS (4)
  - Drug delivery system malfunction [Unknown]
  - Accidental exposure to product [Unknown]
  - Eye irritation [Unknown]
  - Asthenopia [Unknown]
